FAERS Safety Report 6406102-2 (Version None)
Quarter: 2009Q4

REPORT INFORMATION
  Report Type: 
  Country: None (occurrence: None)
  Receive Date: 20091019
  Receipt Date: 20091009
  Transmission Date: 20100525
  Serious: Yes (Hospitalization)
  Sender: FDA-Public Use
  Company Number: JP-ASTRAZENECA-2009SE08030

PATIENT
  Age: 2 Month
  Sex: Male

DRUGS (3)
  1. FOSCAVIR [Suspect]
     Indication: CONGENITAL CYTOMEGALOVIRUS INFECTION
     Route: 041
     Dates: start: 20090801, end: 20090819
  2. FOSCAVIR [Suspect]
     Route: 041
     Dates: start: 20090831, end: 20090914
  3. FOSCAVIR [Suspect]
     Route: 041
     Dates: start: 20090915, end: 20090927

REACTIONS (2)
  - HYPERCALCAEMIA [None]
  - HYPERCREATININAEMIA [None]
